FAERS Safety Report 23313700 (Version 1)
Quarter: 2023Q4

REPORT INFORMATION
  Report Type: Spontaneous
  Country: CN (occurrence: CN)
  Receive Date: 20231219
  Receipt Date: 20231219
  Transmission Date: 20240110
  Serious: Yes (Other)
  Sender: FDA-Public Use
  Company Number: CN-BAYER-2023A180687

PATIENT
  Age: 78 Year
  Sex: Male
  Weight: 80 kg

DRUGS (2)
  1. AVELOX [Suspect]
     Active Substance: MOXIFLOXACIN HYDROCHLORIDE
     Indication: Pneumonia mycoplasmal
     Dosage: 0.4 G, QD
     Route: 041
     Dates: start: 20231029, end: 20231102
  2. LEVOFLOXACIN [Concomitant]
     Active Substance: LEVOFLOXACIN
     Indication: Pneumonia mycoplasmal
     Dosage: 0.5 G, QD
     Route: 041
     Dates: start: 20231027, end: 20231029

REACTIONS (3)
  - Hallucination [Recovering/Resolving]
  - Nervous system disorder [Recovering/Resolving]
  - Hallucination, auditory [Recovering/Resolving]

NARRATIVE: CASE EVENT DATE: 20231101
